FAERS Safety Report 11347308 (Version 1)
Quarter: 2015Q3

REPORT INFORMATION
  Report Type: Spontaneous
  Country: GR (occurrence: GR)
  Receive Date: 20150806
  Receipt Date: 20150806
  Transmission Date: 20151125
  Serious: Yes (Other)
  Sender: FDA-Public Use
  Company Number: GR-PFIZER INC-2015257066

PATIENT
  Age: 75 Year
  Sex: Male

DRUGS (1)
  1. XALATAN [Suspect]
     Active Substance: LATANOPROST
     Dosage: UNK
     Dates: start: 2005

REACTIONS (5)
  - Eye irritation [Unknown]
  - Coagulopathy [Unknown]
  - Cataract [Unknown]
  - Gastric disorder [Unknown]
  - Eye pain [Unknown]
